FAERS Safety Report 4784741-2 (Version None)
Quarter: 2005Q3

REPORT INFORMATION
  Report Type: 
  Country: None (occurrence: None)
  Receive Date: 20050930
  Receipt Date: 20050919
  Transmission Date: 20060218
  Serious: Yes (Other)
  Sender: FDA-Public Use
  Company Number: HU-ROCHE-418798

PATIENT
  Age: 17 Year
  Sex: Male
  Weight: 65 kg

DRUGS (4)
  1. ROACCUTAN [Suspect]
     Indication: ACNE
     Route: 048
     Dates: start: 20050823, end: 20050920
  2. ROACCUTAN [Suspect]
     Route: 048
     Dates: start: 20041202, end: 20050215
  3. ROACCUTAN [Suspect]
     Route: 048
     Dates: start: 20050215
  4. ROACCUTAN [Suspect]
     Route: 048
     Dates: end: 20050815

REACTIONS (2)
  - MIGRAINE [None]
  - VISUAL FIELD DEFECT [None]
